FAERS Safety Report 18151764 (Version 2)
Quarter: 2020Q3

REPORT INFORMATION
  Report Type: Spontaneous
  Country: US (occurrence: US)
  Receive Date: 20200814
  Receipt Date: 20200819
  Transmission Date: 20201103
  Serious: Yes (Life-Threatening, Hospitalization, Other)
  Sender: FDA-Public Use
  Company Number: US-STRIDES ARCOLAB LIMITED-2020SP009201

PATIENT
  Age: 43 Year
  Sex: Male

DRUGS (9)
  1. VENLAFAXINE [Concomitant]
     Active Substance: VENLAFAXINE HYDROCHLORIDE
     Indication: PRODUCT USED FOR UNKNOWN INDICATION
     Dosage: 1 DOSAGE FORM, QD, CAPSULE
     Route: 065
  2. LORAZEPAM. [Concomitant]
     Active Substance: LORAZEPAM
     Indication: TREMOR
     Dosage: 1 MILLIGRAM, SINGLE
     Route: 065
  3. PREDNISOLONE. [Interacting]
     Active Substance: PREDNISOLONE
     Indication: PRODUCT USED FOR UNKNOWN INDICATION
     Dosage: 60 MILLIGRAM, EVERY MORNING (TABLET)
     Route: 048
  4. CLONIDINE. [Interacting]
     Active Substance: CLONIDINE
     Indication: ALCOHOL WITHDRAWAL SYNDROME
     Dosage: 0.1 MILLIGRAM, QD
     Route: 062
  5. FOLIC ACID. [Concomitant]
     Active Substance: FOLIC ACID
     Indication: PRODUCT USED FOR UNKNOWN INDICATION
     Dosage: 1 MILLIGRAM, QD, TABLET
     Route: 048
  6. IRON [Concomitant]
     Active Substance: IRON
     Indication: PRODUCT USED FOR UNKNOWN INDICATION
     Dosage: 1 DOSAGE FORM, QD, TABLET
     Route: 048
  7. GABAPENTIN. [Suspect]
     Active Substance: GABAPENTIN
     Indication: ALCOHOL WITHDRAWAL SYNDROME
     Dosage: 300 MILLIGRAM, EVERY 8 HRS (CAPSULE)
     Route: 048
  8. CLONIDINE. [Interacting]
     Active Substance: CLONIDINE
     Dosage: 0.1 MILLIGRAM, QD
     Route: 062
  9. LORAZEPAM. [Concomitant]
     Active Substance: LORAZEPAM
     Indication: TACHYCARDIA

REACTIONS (8)
  - Suicide attempt [Unknown]
  - Suicidal ideation [Unknown]
  - Off label use [Unknown]
  - Drug interaction [Unknown]
  - Gun shot wound [Unknown]
  - Depression [Unknown]
  - Confusional state [Unknown]
  - Social avoidant behaviour [Unknown]
